FAERS Safety Report 9161602 (Version 1)
Quarter: 2013Q1

REPORT INFORMATION
  Report Type: Spontaneous
  Country: ES (occurrence: ES)
  Receive Date: 20130313
  Receipt Date: 20130313
  Transmission Date: 20140127
  Serious: Yes (Hospitalization)
  Sender: FDA-Public Use
  Company Number: ES-B.I. PHARMACEUTICALS,INC./RIDGEFIELD-2013-ES-00094ES

PATIENT
  Age: 78 Year
  Sex: Female

DRUGS (8)
  1. PRADAXA [Suspect]
     Indication: ATRIAL FIBRILLATION
     Dosage: 150 MG
     Route: 048
     Dates: start: 20120301, end: 20120310
  2. ADIRO [Suspect]
     Dosage: 100 MG
     Route: 048
     Dates: start: 20111215
  3. OMEPRAZOL [Concomitant]
     Indication: PROPHYLAXIS AGAINST GASTROINTESTINAL ULCER
     Route: 048
     Dates: start: 20030530
  4. TORASEMIDA [Concomitant]
     Dosage: 10 MG
  5. ATACAND [Concomitant]
     Dosage: 16 MG
  6. BELOKEN RETARD [Concomitant]
     Dosage: 50 MG
  7. DIANBEN [Concomitant]
     Dosage: 850 MG
  8. EUTIROX [Concomitant]
     Dosage: 75 MG

REACTIONS (3)
  - Gastrointestinal haemorrhage [Recovered/Resolved]
  - Epistaxis [Recovered/Resolved]
  - Drug interaction [Recovered/Resolved]
